FAERS Safety Report 5792905-4 (Version None)
Quarter: 2008Q2

REPORT INFORMATION
  Report Type: 
  Country: None (occurrence: None)
  Receive Date: 20080627
  Receipt Date: 20080422
  Transmission Date: 20081010
  Serious: No
  Sender: FDA-Public Use
  Company Number: US-BAYER-200822372NA

PATIENT
  Age: 72 Year
  Sex: Female

DRUGS (1)
  1. ULTRAVIST 300 [Suspect]
     Indication: DRUG USE FOR UNKNOWN INDICATION
     Dosage: AS USED: 94 ML

REACTIONS (1)
  - SNEEZING [None]
